FAERS Safety Report 25062942 (Version 1)
Quarter: 2025Q1

REPORT INFORMATION
  Report Type: Spontaneous
  Country: VN (occurrence: VN)
  Receive Date: 20250311
  Receipt Date: 20250311
  Transmission Date: 20250409
  Serious: Yes (Other)
  Sender: NOVARTIS
  Company Number: VN-002147023-NVSC2025VN038982

PATIENT
  Age: 37 Year
  Sex: Female
  Weight: 85 kg

DRUGS (1)
  1. OXCARBAZEPINE [Suspect]
     Active Substance: OXCARBAZEPINE
     Indication: Generalised tonic-clonic seizure
     Dosage: 3 DOSAGE FORM, QD (300MG X 3 TABLETS/DAY)
     Route: 048

REACTIONS (5)
  - Generalised tonic-clonic seizure [Unknown]
  - Symptom recurrence [Unknown]
  - Partial seizures [Unknown]
  - Insomnia [Unknown]
  - Product dose omission in error [Unknown]
